FAERS Safety Report 8234001-2 (Version None)
Quarter: 2012Q1

REPORT INFORMATION
  Report Type: 
  Country: None (occurrence: None)
  Receive Date: 20120323
  Receipt Date: 20120323
  Transmission Date: 20120608
  Serious: Yes (Hospitalization)
  Sender: FDA-Public Use
  Company Number: None

PATIENT
  Age: 44 Year
  Sex: Male
  Weight: 132.7 kg

DRUGS (3)
  1. VANCOMYCIN [Suspect]
     Indication: PSEUDOMONAS INFECTION
     Dosage: 1 GM TID IV
     Route: 042
     Dates: start: 20110812, end: 20110816
  2. VANCOMYCIN [Suspect]
     Indication: STAPHYLOCOCCAL INFECTION
     Dosage: 1 GM TID IV
     Route: 042
     Dates: start: 20110812, end: 20110816
  3. VANCOMYCIN [Suspect]
     Indication: ARTHRITIS BACTERIAL
     Dosage: 1 GM TID IV
     Route: 042
     Dates: start: 20110812, end: 20110816

REACTIONS (4)
  - RENAL FAILURE ACUTE [None]
  - VOMITING [None]
  - DIARRHOEA [None]
  - RENAL TUBULAR NECROSIS [None]
